FAERS Safety Report 18226923 (Version 2)
Quarter: 2020Q4

REPORT INFORMATION
  Report Type: Spontaneous
  Country: US (occurrence: US)
  Receive Date: 20200903
  Receipt Date: 20201130
  Transmission Date: 20210113
  Serious: No
  Sender: FDA-Public Use
  Company Number: US-MYLANLABS-2020M1073936

PATIENT
  Sex: Female
  Weight: 127 kg

DRUGS (1)
  1. WIXELA INHUB [Suspect]
     Active Substance: FLUTICASONE PROPIONATE\SALMETEROL XINAFOATE
     Indication: CHRONIC OBSTRUCTIVE PULMONARY DISEASE
     Dosage: 1000/100MCG BID
     Route: 055

REACTIONS (2)
  - Device issue [Not Recovered/Not Resolved]
  - Intentional product misuse [Not Recovered/Not Resolved]
